FAERS Safety Report 8510463-8 (Version None)
Quarter: 2012Q3

REPORT INFORMATION
  Report Type: 
  Country: None (occurrence: None)
  Receive Date: 20120715
  Receipt Date: 20120703
  Transmission Date: 20120928
  Serious: Yes (Hospitalization)
  Sender: FDA-Public Use
  Company Number: GB-TEVA-346460ISR

PATIENT
  Age: 87 Year
  Sex: Male

DRUGS (5)
  1. CITALOPRAM HYDROBROMIDE [Suspect]
     Dosage: 10MG DAILY
     Route: 048
     Dates: start: 20100801, end: 20100901
  2. CITALOPRAM HYDROBROMIDE [Suspect]
     Dosage: 50MG DAILY
     Route: 048
     Dates: end: 20120601
  3. CITALOPRAM HYDROBROMIDE [Suspect]
     Dosage: 20MG DAILY
     Route: 048
     Dates: start: 20120601
  4. CITALOPRAM HYDROBROMIDE [Suspect]
     Dosage: 40 MILLIGRAM; 40MG DAILY
     Route: 048
  5. CITALOPRAM HYDROBROMIDE [Suspect]
     Dosage: 20MG DAILY
     Route: 048
     Dates: start: 20100901

REACTIONS (2)
  - OVERDOSE [None]
  - FALL [None]
